FAERS Safety Report 24739444 (Version 1)
Quarter: 2024Q4

REPORT INFORMATION
  Report Type: Report from Study
  Country: US (occurrence: US)
  Receive Date: 20241216
  Receipt Date: 20241216
  Transmission Date: 20250115
  Serious: Yes (Other)
  Sender: PARATEK PHARMACEUTICALS
  Company Number: US-PARATEK PHARMACEUTICALS, INC.-2024PTK00327

PATIENT
  Age: 64 Year
  Sex: Female
  Weight: 45.351 kg

DRUGS (8)
  1. NUZYRA [Suspect]
     Active Substance: OMADACYCLINE
     Indication: Infection
     Dosage: 300 MG, 1X/DAY
     Route: 048
     Dates: start: 20240201, end: 2024
  2. NUZYRA [Suspect]
     Active Substance: OMADACYCLINE
     Indication: Pathogen resistance
     Dosage: 300 MG, 1X/DAY
     Route: 048
     Dates: start: 2024, end: 202411
  3. RIFAMPIN [Concomitant]
     Active Substance: RIFAMPIN
  4. AZITHROMYCIN [Concomitant]
     Active Substance: AZITHROMYCIN
  5. LEVOTHYROXINE [Concomitant]
     Active Substance: LEVOTHYROXINE
  6. LEVOFLOXACIN [Concomitant]
     Active Substance: LEVOFLOXACIN
  7. SIVEXTRO [Concomitant]
     Active Substance: TEDIZOLID PHOSPHATE
  8. FOSAMAX [Concomitant]
     Active Substance: ALENDRONATE SODIUM

REACTIONS (2)
  - Glomerular filtration rate decreased [Recovering/Resolving]
  - Dizziness [Not Recovered/Not Resolved]

NARRATIVE: CASE EVENT DATE: 20240101
